FAERS Safety Report 25182317 (Version 1)
Quarter: 2025Q2

REPORT INFORMATION
  Report Type: Spontaneous
  Country: US (occurrence: US)
  Receive Date: 20250410
  Receipt Date: 20250410
  Transmission Date: 20250716
  Serious: No
  Sender: KINIKSA PHARMACEUTICALS
  Company Number: US-Kiniksa Pharmaceuticals Ltd.-2024KPU001214

PATIENT
  Age: 73 Year
  Sex: Female

DRUGS (2)
  1. ARCALYST [Suspect]
     Active Substance: RILONACEPT
     Indication: Pericarditis
     Route: 058
     Dates: start: 20240713
  2. ARCALYST [Suspect]
     Active Substance: RILONACEPT

REACTIONS (18)
  - COVID-19 [Unknown]
  - Hypersensitivity [Unknown]
  - Sneezing [Unknown]
  - Pyrexia [Recovered/Resolved]
  - Sinusitis [Unknown]
  - Pain [Unknown]
  - Product dose omission issue [Unknown]
  - Nasal congestion [Not Recovered/Not Resolved]
  - Rhinorrhoea [Not Recovered/Not Resolved]
  - Fatigue [Not Recovered/Not Resolved]
  - Cough [Not Recovered/Not Resolved]
  - Chest discomfort [Unknown]
  - Rash erythematous [Not Recovered/Not Resolved]
  - Rash macular [Unknown]
  - Injection site mass [Unknown]
  - Therapeutic response unexpected [Unknown]
  - Inappropriate schedule of product administration [Unknown]
  - Product administered at inappropriate site [Unknown]

NARRATIVE: CASE EVENT DATE: 20240701
